FAERS Safety Report 16259818 (Version 1)
Quarter: 2019Q2

REPORT INFORMATION
  Report Type: Spontaneous
  Country: US (occurrence: US)
  Receive Date: 20190501
  Receipt Date: 20190501
  Transmission Date: 20190711
  Serious: No
  Sender: FDA-Public Use
  Company Number: PHEH2019US018366

PATIENT
  Sex: Female

DRUGS (1)
  1. CLOTRIMAZOLE AND BETAMETHASONE [Suspect]
     Active Substance: BETAMETHASONE\CLOTRIMAZOLE
     Indication: SKIN BURNING SENSATION
     Dosage: 1 %, BID
     Route: 061
     Dates: start: 20190421

REACTIONS (1)
  - Drug ineffective [Unknown]
